FAERS Safety Report 12212852 (Version 1)
Quarter: 2016Q1

REPORT INFORMATION
  Report Type: Spontaneous
  Country: US (occurrence: None)
  Receive Date: 20160325
  Receipt Date: 20160325
  Transmission Date: 20160526
  Serious: Yes (Hospitalization)
  Sender: FDA-Public Use
  Company Number: None

PATIENT
  Age: 64 Year
  Sex: Male

DRUGS (3)
  1. LINEZOLID. [Suspect]
     Active Substance: LINEZOLID
     Indication: ENTEROCOCCAL INFECTION
     Route: 048
     Dates: start: 20160222, end: 20160307
  2. LINEZOLID. [Suspect]
     Active Substance: LINEZOLID
     Indication: ABSCESS
     Route: 048
     Dates: start: 20160222, end: 20160307
  3. CYCLOSPORINE. [Suspect]
     Active Substance: CYCLOSPORINE
     Indication: LIVER TRANSPLANT
     Route: 048
     Dates: start: 20111007

REACTIONS (4)
  - Nausea [None]
  - Vomiting [None]
  - Lactic acidosis [None]
  - Pancytopenia [None]

NARRATIVE: CASE EVENT DATE: 20160307
